FAERS Safety Report 6147312-1 (Version None)
Quarter: 2009Q2

REPORT INFORMATION
  Report Type: 
  Country: None (occurrence: None)
  Receive Date: 20090408
  Receipt Date: 20090325
  Transmission Date: 20091009
  Serious: Yes (Hospitalization)
  Sender: FDA-Public Use
  Company Number: PHHY2009MX11265

PATIENT
  Sex: Female

DRUGS (1)
  1. DIOVAN HCT [Suspect]
     Indication: HYPERTENSION
     Dosage: 1 DF (160/25 MG)/DAY
     Route: 048
     Dates: start: 20050601

REACTIONS (6)
  - ABDOMINAL PAIN [None]
  - APPENDICECTOMY [None]
  - APPENDIX DISORDER [None]
  - DISCOMFORT [None]
  - PYREXIA [None]
  - URINARY TRACT INFECTION [None]
